FAERS Safety Report 6465660-2 (Version None)
Quarter: 2009Q4

REPORT INFORMATION
  Report Type: 
  Country: None (occurrence: None)
  Receive Date: 20091124
  Receipt Date: 20091118
  Transmission Date: 20100525
  Serious: Yes (Life-Threatening)
  Sender: FDA-Public Use
  Company Number: 1750CARBOVINO09

PATIENT
  Age: 64 Year
  Sex: Male

DRUGS (2)
  1. VINORELBINE [Suspect]
     Indication: NON-SMALL CELL LUNG CANCER
     Dosage: 30 MG/M2, Q21 DAYS, IV
     Route: 042
  2. CARBOPLATIN [Suspect]
     Indication: NON-SMALL CELL LUNG CANCER
     Dosage: Q21 DAYS,

REACTIONS (2)
  - ADRENOCORTICAL INSUFFICIENCY ACUTE [None]
  - RENAL FAILURE ACUTE [None]
